FAERS Safety Report 25774552 (Version 1)
Quarter: 2025Q3

REPORT INFORMATION
  Report Type: Spontaneous
  Country: US (occurrence: US)
  Receive Date: 20250908
  Receipt Date: 20250908
  Transmission Date: 20251021
  Serious: Yes (Death, Hospitalization, Other)
  Sender: AMGEN
  Company Number: US-AMGEN-USASP2025173705

PATIENT

DRUGS (1)
  1. AVSOLA [Suspect]
     Active Substance: INFLIXIMAB-AXXQ
     Indication: Colitis ulcerative
     Route: 065

REACTIONS (5)
  - Death [Fatal]
  - Intensive care [Unknown]
  - Colectomy [Unknown]
  - Sepsis [Unknown]
  - Emergency care [Unknown]
